FAERS Safety Report 4836654-5 (Version None)
Quarter: 2005Q4

REPORT INFORMATION
  Report Type: 
  Country: None (occurrence: None)
  Receive Date: 20051121
  Receipt Date: 20051108
  Transmission Date: 20060501
  Serious: Yes (Hospitalization)
  Sender: FDA-Public Use
  Company Number: 2005135568

PATIENT
  Age: 35 Year
  Sex: Female

DRUGS (7)
  1. AZITHROMYCIN [Suspect]
     Indication: PNEUMONIA
     Dosage: 500 MG (QD), ORAL
     Route: 048
     Dates: start: 20050916
  2. BISOLVON (BROMHEXINE HYDROCHLORIDE) [Suspect]
     Indication: PNEUMONIA
     Dosage: 12 MG (4 MG, TID), ORAL
     Route: 048
     Dates: start: 20050916, end: 20050918
  3. RESPLEN (EPRAZINONE HYDROCHLORIDE) [Suspect]
     Indication: PNEUMONIA
     Dosage: 60 MG (20 MG, TID),ORAL
     Route: 048
     Dates: start: 20050916, end: 20050918
  4. LAMISIL [Concomitant]
  5. ROHYPNOL (FLUNITRAZEPAM) [Concomitant]
  6. ANTIBIOTICS (ANTIBIOTICS) [Concomitant]
  7. LOXONIN (LOXOPROFEN SODIUM) [Concomitant]

REACTIONS (9)
  - ABNORMAL BEHAVIOUR [None]
  - DELIRIUM [None]
  - GENERAL SYMPTOM [None]
  - HALLUCINATION [None]
  - HALLUCINATION, VISUAL [None]
  - INSOMNIA [None]
  - MENTAL DISORDER [None]
  - SPEECH DISORDER [None]
  - STRESS [None]
